FAERS Safety Report 9215770 (Version 1)
Quarter: 2013Q2

REPORT INFORMATION
  Report Type: Spontaneous
  Country: US (occurrence: US)
  Receive Date: 20130408
  Receipt Date: 20130408
  Transmission Date: 20140414
  Serious: No
  Sender: FDA-Public Use
  Company Number: US-009507513-1304USA000742

PATIENT
  Sex: Male

DRUGS (1)
  1. CLARINEX-D-12 [Suspect]
     Indication: RHINITIS ALLERGIC
     Dosage: UNK, BID
     Route: 048

REACTIONS (3)
  - Head discomfort [Not Recovered/Not Resolved]
  - Sinusitis [Not Recovered/Not Resolved]
  - Drug ineffective [Not Recovered/Not Resolved]
